FAERS Safety Report 23599296 (Version 3)
Quarter: 2024Q3

REPORT INFORMATION
  Report Type: Report from Study
  Country: US (occurrence: US)
  Receive Date: 20240306
  Receipt Date: 20240708
  Transmission Date: 20241016
  Serious: No
  Sender: BIOVITRUM
  Company Number: US-BIOVITRUM-2024-US-003404

PATIENT
  Age: 8 Year
  Sex: Male

DRUGS (4)
  1. KINERET [Suspect]
     Active Substance: ANAKINRA
     Indication: Epilepsy
     Dosage: Q 12 HOURS
     Route: 058
     Dates: start: 20230308, end: 20240222
  2. KINERET [Suspect]
     Active Substance: ANAKINRA
     Indication: Focal dyscognitive seizures
     Dosage: DAILY
     Route: 058
     Dates: start: 20230308
  3. KINERET [Suspect]
     Active Substance: ANAKINRA
     Indication: Status epilepticus
  4. KINERET [Suspect]
     Active Substance: ANAKINRA
     Indication: Partial seizures

REACTIONS (3)
  - Off label use [Recovered/Resolved]
  - Diarrhoea [Recovered/Resolved]
  - Accident [Unknown]

NARRATIVE: CASE EVENT DATE: 20230308
